FAERS Safety Report 22361313 (Version 1)
Quarter: 2023Q2

REPORT INFORMATION
  Report Type: Spontaneous
  Country: US (occurrence: None)
  Receive Date: 20230523
  Receipt Date: 20230523
  Transmission Date: 20230721
  Serious: Yes (Death)
  Sender: FDA-Public Use
  Company Number: None

PATIENT
  Sex: Male

DRUGS (23)
  1. PROMACTA [Suspect]
     Active Substance: ELTROMBOPAG OLAMINE
     Indication: Thrombocytopenia
     Dosage: FREQUENCY : DAILY;?
     Route: 048
     Dates: start: 202001
  2. NORCO [Concomitant]
  3. LORAZEPAM [Concomitant]
  4. HUMULIN R [Concomitant]
  5. TRAZODONE [Concomitant]
  6. LEVEMIR [Concomitant]
     Active Substance: INSULIN DETEMIR
  7. ALBUTEROL\IPRATROPIUM [Concomitant]
     Active Substance: ALBUTEROL\IPRATROPIUM
  8. ESOMEPRAZOLE MAGNESIUM [Concomitant]
     Active Substance: ESOMEPRAZOLE MAGNESIUM
  9. MULTIVITAMIN [Concomitant]
  10. FUROSEMIDE [Concomitant]
     Active Substance: FUROSEMIDE
  11. POTASSIUM CHLORIDE [Concomitant]
  12. NOVOLIN R [Concomitant]
  13. OXCARBAZEPINE [Concomitant]
  14. RISPERDAL [Concomitant]
  15. VITAMIN D [Concomitant]
  16. FERROUS SULFATE [Concomitant]
  17. CALCIUM [Concomitant]
     Active Substance: CALCIUM
  18. TOBRADEX ST [Concomitant]
  19. TESSALON PERLES [Concomitant]
  20. ADVAIR HFA [Concomitant]
  21. OCUVITE-LUTEIN [Concomitant]
  22. AFRIN [Concomitant]
  23. FLOMAX [Concomitant]

REACTIONS (1)
  - Death [None]
